FAERS Safety Report 8834319 (Version 1)
Quarter: 2012Q4

REPORT INFORMATION
  Report Type: 
  Country: NO (occurrence: NO)
  Receive Date: 20121010
  Receipt Date: 20121010
  Transmission Date: 20130627
  Serious: Yes (Hospitalization)
  Sender: FDA-Public Use
  Company Number: NO-PFIZER INC-2012247713

PATIENT
  Age: 43 Year
  Sex: Male
  Weight: 69 kg

DRUGS (2)
  1. MORPHINE SULFATE [Suspect]
     Indication: SEDATION
     Dosage: total dose 1.547 g, mean 141mg/day
     Route: 041
  2. MIDAZOLAM [Concomitant]
     Indication: SEDATION
     Dosage: total dose 388 mg

REACTIONS (1)
  - Toxicity to various agents [Recovered/Resolved]
